FAERS Safety Report 8545753-6 (Version None)
Quarter: 2012Q3

REPORT INFORMATION
  Report Type: 
  Country: None (occurrence: None)
  Receive Date: 20120727
  Receipt Date: 20111227
  Transmission Date: 20120928
  Serious: No
  Sender: FDA-Public Use
  Company Number: US-ASTRAZENECA-2011SE73365

PATIENT
  Age: 679 Month
  Sex: Female

DRUGS (3)
  1. SEROQUEL [Suspect]
     Dosage: 300 MG AND 150 MG
     Route: 048
  2. SEROQUEL [Suspect]
     Indication: DEPRESSION
     Route: 048
  3. SEROQUEL [Suspect]
     Route: 048

REACTIONS (6)
  - RASH [None]
  - OFF LABEL USE [None]
  - DRUG DOSE OMISSION [None]
  - MALAISE [None]
  - HYPERHIDROSIS [None]
  - NAUSEA [None]
